FAERS Safety Report 9563597 (Version 1)
Quarter: 2013Q1

REPORT INFORMATION
  Report Type: Spontaneous
  Country: US (occurrence: None)
  Receive Date: 20121218
  Receipt Date: 20121218
  Transmission Date: 20140127
  Serious: Yes (Other)
  Sender: FDA-Public Use
  Company Number: PHEH2012US003532

PATIENT
  Age: 58 Year
  Sex: Male

DRUGS (20)
  1. ZOMETA (ZOLEDRONATE) SOLUTION FOR INJECTION [Suspect]
     Route: 042
     Dates: start: 20120112
  2. ZOMETA (ZOLEDRONATE) SOLUTION FOR INJECTION [Suspect]
     Indication: METASTASES TO BONE
     Route: 042
     Dates: start: 20120112
  3. RAPAMUNE (SIROLIMUS) [Concomitant]
  4. NEXIUM [Concomitant]
  5. FLUOXETINE (FLUOXETINE) [Concomitant]
  6. LISINOPRIL (LISINOPRIL) [Concomitant]
  7. DOXAZOSIN (DOXAZOSIN) [Concomitant]
  8. MORPHINE [Concomitant]
  9. VITAMIN D (ERGOCALCIFEROL) [Concomitant]
  10. NEXAVAR (SORAFENIB TOSILATE) [Concomitant]
  11. AMLODIPINE BESYLATE (AMLODIPINE BESILATE) [Concomitant]
  12. OSCAL (CALCIUM CARBONATE) [Concomitant]
  13. ALLOPURINOL [Concomitant]
  14. IRON (IRON) [Concomitant]
  15. PARDEDILOL [Concomitant]
  16. FLURXETINE [Concomitant]
  17. LIONINOPRIL [Concomitant]
  18. DOXAZOIN [Concomitant]
  19. MRPHIN ER [Concomitant]
  20. MORPHINE IR [Concomitant]

REACTIONS (6)
  - Pain [None]
  - Body temperature increased [None]
  - Jaw disorder [None]
  - Bone pain [None]
  - Dental caries [None]
  - Toothache [None]
